FAERS Safety Report 5897983-X (Version None)
Quarter: 2008Q3

REPORT INFORMATION
  Report Type: 
  Country: None (occurrence: None)
  Receive Date: 20080925
  Receipt Date: 20080923
  Transmission Date: 20090109
  Serious: Yes (Other)
  Sender: FDA-Public Use
  Company Number: D0058812A

PATIENT
  Sex: Female

DRUGS (2)
  1. LAMOTRIGINE (RATIOPHARM) [Suspect]
     Route: 048
  2. OMEPRAZOLE [Concomitant]
     Route: 065

REACTIONS (2)
  - DYSPEPSIA [None]
  - GASTRIC ULCER [None]
